FAERS Safety Report 21213115 (Version 2)
Quarter: 2022Q4

REPORT INFORMATION
  Report Type: Spontaneous
  Country: US (occurrence: US)
  Receive Date: 20220815
  Receipt Date: 20221027
  Transmission Date: 20230113
  Serious: No
  Sender: FDA-Public Use
  Company Number: US-Blueprint Medicines Corporation-334

PATIENT
  Sex: Male

DRUGS (1)
  1. AYVAKIT [Suspect]
     Active Substance: AVAPRITINIB
     Indication: Gastrointestinal stromal tumour
     Route: 065
     Dates: start: 20220131

REACTIONS (6)
  - Urine flow decreased [Unknown]
  - Lacrimation increased [Unknown]
  - Periorbital swelling [Unknown]
  - Hair colour changes [Unknown]
  - Rash [Unknown]
  - Rash macular [Unknown]
